FAERS Safety Report 6299825-X (Version None)
Quarter: 2009Q3

REPORT INFORMATION
  Report Type: 
  Country: None (occurrence: None)
  Receive Date: 20090804
  Receipt Date: 20090728
  Transmission Date: 20100115
  Serious: Yes (Death)
  Sender: FDA-Public Use
  Company Number: TPA2009A00807

PATIENT
  Age: 48 Year
  Sex: Male
  Weight: 116.1 kg

DRUGS (11)
  1. ULORIC [Suspect]
     Indication: GOUT
     Dosage: 80 MG, 1 IN 1 D, PER ORAL
     Route: 048
     Dates: start: 20090320
  2. TRAMADOL HCL [Suspect]
     Indication: PAIN
     Dosage: AS REQUIRED, ORAL
     Route: 048
  3. METHADONE HCL [Suspect]
     Dosage: 140 MG, 1 IN 1 D, ORAL
     Route: 048
  4. VICODIN [Concomitant]
  5. LEVOTHYROXINE SODIUM [Concomitant]
  6. PIROXICAM [Concomitant]
  7. JANUMET [Concomitant]
  8. SYMBICORT [Concomitant]
  9. TOPROL-XL [Concomitant]
  10. CADUET (ATORVASTATIN CALCIUM, AMLODPINE BESILATE) [Concomitant]
  11. LISINOPRIL/HYDROCHLOROTHIAZIDE (HYDROCHLOROTHIAZIDE, LISINOPRL) [Concomitant]

REACTIONS (6)
  - ACCIDENTAL OVERDOSE [None]
  - CONGESTIVE CARDIOMYOPATHY [None]
  - DRUG TOXICITY [None]
  - PULMONARY OEDEMA [None]
  - THYROID FIBROSIS [None]
  - UNRESPONSIVE TO STIMULI [None]
